FAERS Safety Report 4636624-6 (Version None)
Quarter: 2005Q2

REPORT INFORMATION
  Report Type: 
  Country: None (occurrence: None)
  Receive Date: 20050414
  Receipt Date: 20050331
  Transmission Date: 20051028
  Serious: Yes (Hospitalization)
  Sender: FDA-Public Use
  Company Number: 8009809

PATIENT
  Age: 19 Year
  Sex: Female
  Weight: 50 kg

DRUGS (5)
  1. KEPPRA [Suspect]
     Indication: PARTIAL SEIZURES
     Dosage: 500 MG 2/D PO
     Route: 048
     Dates: start: 20040109, end: 20040219
  2. KEPPRA [Suspect]
     Indication: PARTIAL SEIZURES
     Dosage: 1000 MG 2/D PO
     Route: 048
     Dates: start: 20040220
  3. TEGRETOL-XR [Concomitant]
  4. TOPIRAMATE [Concomitant]
  5. IBUPROFEN [Concomitant]

REACTIONS (7)
  - AGGRESSION [None]
  - ANGER [None]
  - CONVULSION [None]
  - FOOT FRACTURE [None]
  - HAEMATOMA [None]
  - SELF INJURIOUS BEHAVIOUR [None]
  - SHOCK [None]
